FAERS Safety Report 24131650 (Version 1)
Quarter: 2024Q3

REPORT INFORMATION
  Report Type: Spontaneous
  Country: US (occurrence: US)
  Receive Date: 20240724
  Receipt Date: 20240724
  Transmission Date: 20241017
  Serious: Yes (Other)
  Sender: ABBVIE
  Company Number: US-ALLERGAN-2307587US

PATIENT
  Sex: Female

DRUGS (2)
  1. REFRESH RELIEVA PF [Suspect]
     Active Substance: CARBOXYMETHYLCELLULOSE SODIUM\GLYCERIN
     Indication: Product used for unknown indication
     Route: 047
  2. GENTIL [Concomitant]
     Indication: Product used for unknown indication

REACTIONS (6)
  - Keratomileusis [Unknown]
  - Cataract [Unknown]
  - Visual impairment [Unknown]
  - Diabetic neuropathy [Unknown]
  - Glaucoma [Unknown]
  - Eye irritation [Unknown]
